FAERS Safety Report 13135590 (Version 1)
Quarter: 2017Q1

REPORT INFORMATION
  Report Type: Spontaneous
  Country: GB (occurrence: GB)
  Receive Date: 20170120
  Receipt Date: 20170120
  Transmission Date: 20170428
  Serious: Yes (Congenital Anomaly)
  Sender: FDA-Public Use
  Company Number: GB-ABBVIE-17P-167-1845199-00

PATIENT
  Sex: Female

DRUGS (1)
  1. VALPROATE SODIUM. [Suspect]
     Active Substance: VALPROATE SODIUM
     Indication: MATERNAL EXPOSURE TIMING UNSPECIFIED
     Route: 064

REACTIONS (7)
  - Foetal anticonvulsant syndrome [Unknown]
  - Premature menopause [Unknown]
  - Gait disturbance [Unknown]
  - Foetal exposure during pregnancy [Unknown]
  - Hypoacusis [Unknown]
  - Growth retardation [Unknown]
  - Speech disorder [Unknown]
